FAERS Safety Report 19744253 (Version 1)
Quarter: 2021Q3

REPORT INFORMATION
  Report Type: Spontaneous
  Country: US (occurrence: US)
  Receive Date: 20210823
  Receipt Date: 20210823
  Transmission Date: 20211014
  Serious: Yes (Hospitalization)
  Sender: FDA-Public Use
  Company Number: None

PATIENT
  Age: 59 Year
  Sex: Male

DRUGS (2)
  1. FERUMOXYTOL (FERUMOXYTOL 30MG (IRON)/ML INJ) [Suspect]
     Active Substance: FERUMOXYTOL
     Indication: IRON DEFICIENCY ANAEMIA
     Route: 042
     Dates: start: 20210716, end: 20210716
  2. FERUMOXYTOL (FERUMOXYTOL 30MG (IRON)/ML INJ) [Suspect]
     Active Substance: FERUMOXYTOL
     Indication: OESOPHAGEAL CARCINOMA

REACTIONS (5)
  - Infusion related reaction [None]
  - Pulmonary embolism [None]
  - Dyspnoea [None]
  - Flushing [None]
  - Cardio-respiratory arrest [None]

NARRATIVE: CASE EVENT DATE: 20210716
